FAERS Safety Report 4361589-4 (Version None)
Quarter: 2004Q2

REPORT INFORMATION
  Report Type: 
  Country: None (occurrence: None)
  Receive Date: 20040521
  Receipt Date: 20040406
  Transmission Date: 20050107
  Serious: No
  Sender: FDA-Public Use
  Company Number: US-GLAXOSMITHKLINE-A0506133A

PATIENT
  Age: 40 Year
  Sex: Female
  Weight: 84.5 kg

DRUGS (1)
  1. WELLBUTRIN XL [Suspect]
     Route: 048
     Dates: start: 20040315

REACTIONS (1)
  - OEDEMA PERIPHERAL [None]
